FAERS Safety Report 6158269-1 (Version None)
Quarter: 2009Q2

REPORT INFORMATION
  Report Type: 
  Country: None (occurrence: None)
  Receive Date: 20090417
  Receipt Date: 20071204
  Transmission Date: 20091009
  Serious: Yes (Death, Other)
  Sender: FDA-Public Use
  Company Number: US-ASTRAZENECA-2006UW11487

PATIENT
  Age: 26846 Day
  Sex: Male
  Weight: 96.6 kg

DRUGS (21)
  1. SEROQUEL [Suspect]
     Indication: MENTAL DISORDER
     Route: 048
     Dates: start: 20010221, end: 20020802
  2. SEROQUEL [Suspect]
     Indication: SCHIZOPHRENIA, PARANOID TYPE
     Route: 048
     Dates: start: 20010221, end: 20020802
  3. SEROQUEL [Suspect]
     Indication: PARKINSONISM
     Route: 048
     Dates: start: 20010221, end: 20020802
  4. SEROQUEL [Suspect]
     Dosage: 25MG-50 MG
     Route: 048
     Dates: start: 20010216
  5. SEROQUEL [Suspect]
     Dosage: 25MG-50 MG
     Route: 048
     Dates: start: 20010216
  6. SEROQUEL [Suspect]
     Dosage: 25MG-50 MG
     Route: 048
     Dates: start: 20010216
  7. PILOCARPINE [Concomitant]
  8. LASIX [Concomitant]
  9. METOPROLOL TARTRATE [Concomitant]
  10. PEPSID [Concomitant]
  11. COLCHICINE [Concomitant]
  12. LISINOPRIL [Concomitant]
  13. NIFEDIPINE [Concomitant]
  14. AMIODARONE HCL [Concomitant]
  15. RISPERIDONE [Concomitant]
  16. TIMOPTIC [Concomitant]
  17. ALPHAGAN [Concomitant]
  18. COUMADIN [Concomitant]
  19. LOVENOX [Concomitant]
  20. DIGOXIN [Concomitant]
  21. ZAVOXYLYN [Concomitant]

REACTIONS (18)
  - ACIDOSIS [None]
  - ANAEMIA MACROCYTIC [None]
  - APLASTIC ANAEMIA [None]
  - ARTERIOSCLEROSIS CORONARY ARTERY [None]
  - CARDIAC FAILURE [None]
  - CARDIAC FAILURE CONGESTIVE [None]
  - CARDIOGENIC SHOCK [None]
  - DEHYDRATION [None]
  - DIABETES MELLITUS [None]
  - HAEMATURIA [None]
  - INTESTINAL OBSTRUCTION [None]
  - OEDEMA PERIPHERAL [None]
  - PANCREATITIS [None]
  - PNEUMONITIS [None]
  - RENAL FAILURE [None]
  - SEPSIS [None]
  - SUPRAVENTRICULAR TACHYCARDIA [None]
  - URINARY TRACT INFECTION [None]
